FAERS Safety Report 25765785 (Version 1)
Quarter: 2025Q3

REPORT INFORMATION
  Report Type: Spontaneous
  Country: US (occurrence: US)
  Receive Date: 20250905
  Receipt Date: 20250905
  Transmission Date: 20251021
  Serious: No
  Sender: DOMPE FARMACEUTICI
  Company Number: US-FARMAPROD-202406-2389

PATIENT
  Age: 72 Year
  Sex: Female

DRUGS (13)
  1. OXERVATE [Suspect]
     Active Substance: CENEGERMIN-BKBJ
     Indication: Neurotrophic keratopathy
     Route: 047
     Dates: start: 20240619
  2. OXERVATE [Suspect]
     Active Substance: CENEGERMIN-BKBJ
  3. VITAMIN D3 [Concomitant]
     Active Substance: CHOLECALCIFEROL
  4. VITAMINS [Concomitant]
     Active Substance: VITAMINS
  5. CALCIUM 600+MINERALS [Concomitant]
  6. CRESTOR [Concomitant]
     Active Substance: ROSUVASTATIN CALCIUM
  7. FISH OIL [Concomitant]
     Active Substance: FISH OIL
  8. CEVIMELINE HYDROCHLORIDE [Concomitant]
     Active Substance: CEVIMELINE HYDROCHLORIDE
  9. OMEPRAZOLE [Concomitant]
     Active Substance: OMEPRAZOLE
  10. ASPIRIN [Concomitant]
     Active Substance: ASPIRIN
  11. METOPROLOL TARTRATE [Concomitant]
     Active Substance: METOPROLOL TARTRATE
  12. LOSARTAN POTASSIUM [Concomitant]
     Active Substance: LOSARTAN POTASSIUM
  13. VITAL TEARS [Concomitant]

REACTIONS (5)
  - Periorbital pain [Unknown]
  - Periorbital swelling [Unknown]
  - Ocular hyperaemia [Unknown]
  - Eye irritation [Unknown]
  - Eye infection [Unknown]

NARRATIVE: CASE EVENT DATE: 20240619
